FAERS Safety Report 22759100 (Version 2)
Quarter: 2024Q4

REPORT INFORMATION
  Report Type: Spontaneous
  Country: IT (occurrence: IT)
  Receive Date: 20230728
  Receipt Date: 20241001
  Transmission Date: 20250115
  Serious: Yes (Death, Hospitalization)
  Sender: CELLTRION
  Company Number: IT-CELLTRION INC.-2023IT014921

PATIENT

DRUGS (14)
  1. BEVACIZUMAB [Suspect]
     Active Substance: BEVACIZUMAB
     Indication: Hepatocellular carcinoma
     Dosage: 1155 MG
     Route: 065
     Dates: start: 20230331
  2. ATEZOLIZUMAB [Suspect]
     Active Substance: ATEZOLIZUMAB
     Indication: Hepatocellular carcinoma
     Dosage: 1200MG EVERY 3 WEEKS (DOSE LAST STUDY DRUG ADMIN PRIOR AE/SAE: 1200 MG, ON 12/MAY/2023, HE RECEIVED
     Route: 042
     Dates: start: 20230331
  3. ASPIRIN [Concomitant]
     Active Substance: ASPIRIN
  4. AMLODIPINE [Concomitant]
     Active Substance: AMLODIPINE BESYLATE
  5. CANRENONE [Concomitant]
     Active Substance: CANRENONE
  6. CARVEDILOL [Concomitant]
     Active Substance: CARVEDILOL
  7. DUTASTERIDE [Concomitant]
     Active Substance: DUTASTERIDE
  8. IRBESARTAN [Concomitant]
     Active Substance: IRBESARTAN
  9. METFORMIN HYDROCHLORIDE [Concomitant]
     Active Substance: METFORMIN HYDROCHLORIDE
  10. METHYLPREDNISOLONE [Concomitant]
     Active Substance: METHYLPREDNISOLONE
     Dosage: UNK
     Dates: start: 20230615, end: 20230620
  11. PANTOPRAZOLE [Concomitant]
     Active Substance: PANTOPRAZOLE
  12. ACETAMINOPHEN [Concomitant]
     Active Substance: ACETAMINOPHEN
     Dosage: UNK
     Dates: start: 20230509
  13. PREDNISONE [Concomitant]
     Active Substance: PREDNISONE
     Dosage: UNK
     Dates: start: 20230601
  14. SIMVASTATIN [Concomitant]
     Active Substance: SIMVASTATIN

REACTIONS (2)
  - Myositis [Fatal]
  - Intentional product use issue [Unknown]

NARRATIVE: CASE EVENT DATE: 20230601
